FAERS Safety Report 5168216-7 (Version None)
Quarter: 2006Q4

REPORT INFORMATION
  Report Type: 
  Country: None (occurrence: None)
  Receive Date: 20061208
  Receipt Date: 20061206
  Transmission Date: 20070319
  Serious: Yes (Other)
  Sender: FDA-Public Use
  Company Number: US-GLAXOSMITHKLINE-A0630619A

PATIENT

DRUGS (3)
  1. AVANDIA [Suspect]
     Indication: DRUG USE FOR UNKNOWN INDICATION
     Route: 048
  2. STATINS [Concomitant]
     Indication: BLOOD CHOLESTEROL INCREASED
  3. PAIN MEDICATIONS [Concomitant]

REACTIONS (1)
  - HEPATIC ENZYME INCREASED [None]
